FAERS Safety Report 7030508-4 (Version None)
Quarter: 2010Q4

REPORT INFORMATION
  Report Type: 
  Country: None (occurrence: None)
  Receive Date: 20101006
  Receipt Date: 20100924
  Transmission Date: 20110411
  Serious: Yes (Death)
  Sender: FDA-Public Use
  Company Number: US-MYLANLABS-2010S1017284

PATIENT
  Age: 63 Year
  Sex: Male

DRUGS (1)
  1. EMSAM (SELEGILINE TRANSDERMAL SYSTEM) [Suspect]
     Indication: DEPRESSION
     Dosage: CHANGED Q24H
     Route: 062
     Dates: start: 20100623, end: 20100701

REACTIONS (3)
  - COMPLETED SUICIDE [None]
  - HAEMATOMA [None]
  - INTERVERTEBRAL DISC DISPLACEMENT [None]
